FAERS Safety Report 14660060 (Version 1)
Quarter: 2018Q1

REPORT INFORMATION
  Report Type: Report from Study
  Country: JP (occurrence: JP)
  Receive Date: 20180320
  Receipt Date: 20180320
  Transmission Date: 20180509
  Serious: Yes (Hospitalization)
  Sender: FDA-Public Use
  Company Number: JP-GALDERMA-JP18004132

PATIENT
  Age: 71 Year
  Sex: Female
  Weight: 49.5 kg

DRUGS (5)
  1. ROZEX (METRONIDAZOLE) [Suspect]
     Active Substance: METRONIDAZOLE
     Route: 061
     Dates: start: 20171012, end: 20171207
  2. AVASTIN [Concomitant]
     Active Substance: BEVACIZUMAB
     Indication: BREAST CANCER
     Route: 042
     Dates: start: 20170525, end: 20170914
  3. ROZEX (METRONIDAZOLE) [Suspect]
     Active Substance: METRONIDAZOLE
     Route: 061
     Dates: start: 20170502, end: 20171011
  4. ROZEX (METRONIDAZOLE) [Suspect]
     Active Substance: METRONIDAZOLE
     Indication: SKIN ODOUR ABNORMAL
     Route: 061
     Dates: start: 20170428, end: 20170501
  5. PACLITAXEL. [Concomitant]
     Active Substance: PACLITAXEL
     Indication: BREAST CANCER
     Route: 042
     Dates: start: 20170525, end: 20170914

REACTIONS (5)
  - Hypertension [Recovered/Resolved]
  - Skin discomfort [Not Recovered/Not Resolved]
  - Periarthritis [Not Recovered/Not Resolved]
  - Proteinuria [Recovered/Resolved]
  - Cerebral infarction [Recovered/Resolved with Sequelae]

NARRATIVE: CASE EVENT DATE: 20170608
